FAERS Safety Report 9013806 (Version 1)
Quarter: 2013Q1

REPORT INFORMATION
  Report Type: Spontaneous
  Country: US (occurrence: US)
  Receive Date: 20130115
  Receipt Date: 20130115
  Transmission Date: 20140127
  Serious: No
  Sender: FDA-Public Use
  Company Number: US-MYLANLABS-2012S1025285

PATIENT
  Sex: Female

DRUGS (5)
  1. VALSARTAN AND HYDROCHLOROTHIAZIDE [Suspect]
     Indication: BLOOD PRESSURE INCREASED
     Dosage: 160/12.5MG
     Route: 048
     Dates: start: 20121030
  2. CARDIZEM [Concomitant]
     Indication: BLOOD PRESSURE INCREASED
     Route: 048
  3. ASA [Concomitant]
     Route: 048
  4. OMEGA 3 /01334101/ [Concomitant]
     Route: 048
  5. TYLENOL [Concomitant]
     Indication: ARTHRITIS
     Route: 048

REACTIONS (1)
  - Urinary tract infection [Not Recovered/Not Resolved]
